FAERS Safety Report 25232927 (Version 1)
Quarter: 2025Q2

REPORT INFORMATION
  Report Type: Spontaneous
  Country: US (occurrence: US)
  Receive Date: 20250424
  Receipt Date: 20250424
  Transmission Date: 20250717
  Serious: No
  Sender: ELI LILLY AND COMPANY
  Company Number: US-ELI_LILLY_AND_COMPANY-US202504017672

PATIENT
  Age: 50 Year
  Sex: Female

DRUGS (13)
  1. ZEPBOUND [Suspect]
     Active Substance: TIRZEPATIDE
     Indication: Metabolic disorder
     Dosage: 2.5 MG, WEEKLY (1/W)
     Route: 065
  2. ZEPBOUND [Suspect]
     Active Substance: TIRZEPATIDE
     Indication: Metabolic disorder
     Dosage: 2.5 MG, WEEKLY (1/W)
     Route: 065
  3. ZEPBOUND [Suspect]
     Active Substance: TIRZEPATIDE
     Indication: Metabolic disorder
     Dosage: 2.5 MG, WEEKLY (1/W)
     Route: 065
  4. ZEPBOUND [Suspect]
     Active Substance: TIRZEPATIDE
     Indication: Metabolic disorder
     Dosage: 2.5 MG, WEEKLY (1/W)
     Route: 065
  5. ZEPBOUND [Suspect]
     Active Substance: TIRZEPATIDE
     Indication: Metabolic disorder
     Dosage: 5 MG, WEEKLY (1/W)
     Route: 065
     Dates: start: 20250311
  6. ZEPBOUND [Suspect]
     Active Substance: TIRZEPATIDE
     Indication: Metabolic disorder
     Dosage: 5 MG, WEEKLY (1/W)
     Route: 065
     Dates: start: 20250311
  7. ZEPBOUND [Suspect]
     Active Substance: TIRZEPATIDE
     Indication: Metabolic disorder
     Dosage: 5 MG, WEEKLY (1/W)
     Route: 065
     Dates: start: 20250311
  8. ZEPBOUND [Suspect]
     Active Substance: TIRZEPATIDE
     Indication: Metabolic disorder
     Dosage: 5 MG, WEEKLY (1/W)
     Route: 065
     Dates: start: 20250311
  9. HYDROCHLOROTHIAZIDE [Concomitant]
     Active Substance: HYDROCHLOROTHIAZIDE
     Indication: Product used for unknown indication
  10. ROSUVASTATIN [Concomitant]
     Active Substance: ROSUVASTATIN
     Indication: Product used for unknown indication
  11. ESOMEPRAZOLE MAGNESIUM [Concomitant]
     Active Substance: ESOMEPRAZOLE MAGNESIUM
     Indication: Product used for unknown indication
  12. EZETIMIBE [Concomitant]
     Active Substance: EZETIMIBE
     Indication: Product used for unknown indication
  13. LOSARTAN [Concomitant]
     Active Substance: LOSARTAN
     Indication: Product used for unknown indication

REACTIONS (4)
  - Off label use [Unknown]
  - Incorrect dose administered [Recovered/Resolved]
  - Weight increased [Recovered/Resolved]
  - Gastrointestinal disorder [Recovered/Resolved]

NARRATIVE: CASE EVENT DATE: 20250311
